FAERS Safety Report 22646091 (Version 1)
Quarter: 2023Q2

REPORT INFORMATION
  Report Type: Spontaneous
  Country: US (occurrence: None)
  Receive Date: 20230626
  Receipt Date: 20230626
  Transmission Date: 20230722
  Serious: No
  Sender: FDA-Public Use
  Company Number: None

PATIENT
  Age: 4 Year
  Sex: Male

DRUGS (1)
  1. COPPERTONE PURE AND SIMPLE SUNSCREEN SPF 50 [Suspect]
     Active Substance: ZINC OXIDE
     Indication: Prophylaxis against solar radiation
     Dates: start: 20230619, end: 20230619

REACTIONS (3)
  - Rash erythematous [None]
  - Rash papular [None]
  - Application site rash [None]

NARRATIVE: CASE EVENT DATE: 20230620
